FAERS Safety Report 25064118 (Version 1)
Quarter: 2025Q1

REPORT INFORMATION
  Report Type: Spontaneous
  Country: FR (occurrence: None)
  Receive Date: 20250311
  Receipt Date: 20250311
  Transmission Date: 20250408
  Serious: Yes (Hospitalization)
  Sender: ORION
  Company Number: None

PATIENT
  Age: 17 Year
  Sex: Female
  Weight: 45 kg

DRUGS (3)
  1. METHOTREXATE [Interacting]
     Active Substance: METHOTREXATE
     Indication: Colitis ulcerative
     Dates: start: 20240809, end: 20240816
  2. BACTRIM [Interacting]
     Active Substance: SULFAMETHOXAZOLE\TRIMETHOPRIM
     Indication: Infection prophylaxis
     Dates: start: 20240812, end: 20240813
  3. INFLIXIMAB (MAMMIFERE/HAMSTER/CELLULES CHO) [Concomitant]
     Indication: Colitis ulcerative
     Dates: start: 20240809

REACTIONS (7)
  - Product prescribing error [Recovering/Resolving]
  - Wrong dose [Recovering/Resolving]
  - Labelled drug-drug interaction medication error [Recovering/Resolving]
  - Anaemia [Not Recovered/Not Resolved]
  - Cholestasis [Recovering/Resolving]
  - Hepatic cytolysis [Recovering/Resolving]
  - Product use in unapproved indication [Unknown]

NARRATIVE: CASE EVENT DATE: 20240809
